FAERS Safety Report 5677945-8 (Version None)
Quarter: 2008Q1

REPORT INFORMATION
  Report Type: 
  Country: None (occurrence: None)
  Receive Date: 20080319
  Receipt Date: 20080307
  Transmission Date: 20080703
  Serious: Yes (Hospitalization)
  Sender: FDA-Public Use
  Company Number: 2008SP000536

PATIENT
  Age: 80 Year
  Sex: Female

DRUGS (7)
  1. XOPENEX [Suspect]
     Indication: BRONCHITIS
     Dosage: 1.25 MG/3ML; Q4H; INHALATION
     Route: 055
     Dates: start: 20071203
  2. ADVAIR HFA [Concomitant]
  3. CRESTOR [Concomitant]
  4. ZETIA [Concomitant]
  5. FOSAMAX [Concomitant]
  6. COZAAR [Concomitant]
  7. SYNTHROID [Concomitant]

REACTIONS (8)
  - ARTHRALGIA [None]
  - ASTHMA [None]
  - BRONCHITIS [None]
  - DYSSTASIA [None]
  - INSOMNIA [None]
  - PAIN [None]
  - PAIN IN EXTREMITY [None]
  - PNEUMONIA [None]
